FAERS Safety Report 4568376-2 (Version None)
Quarter: 2005Q1

REPORT INFORMATION
  Report Type: 
  Country: None (occurrence: None)
  Receive Date: 20050131
  Receipt Date: 20050118
  Transmission Date: 20050727
  Serious: Yes (Hospitalization)
  Sender: FDA-Public Use
  Company Number: 2005AC00097

PATIENT
  Age: 23 Year
  Sex: Male

DRUGS (2)
  1. EMLA [Suspect]
     Indication: LOCAL ANAESTHESIA
  2. LASER TREATMENT [Suspect]

REACTIONS (13)
  - AGITATION [None]
  - ASTHENIA [None]
  - CONFUSIONAL STATE [None]
  - CSF TEST ABNORMAL [None]
  - DISORIENTATION [None]
  - DRUG TOXICITY [None]
  - FOLLICULITIS [None]
  - HEADACHE [None]
  - LOGORRHOEA [None]
  - LOSS OF CONSCIOUSNESS [None]
  - NAUSEA [None]
  - NERVOUS SYSTEM DISORDER [None]
  - VOMITING [None]
